FAERS Safety Report 8495349-X (Version None)
Quarter: 2012Q3

REPORT INFORMATION
  Report Type: 
  Country: None (occurrence: None)
  Receive Date: 20120709
  Receipt Date: 20120702
  Transmission Date: 20120928
  Serious: Yes (Hospitalization, Other)
  Sender: FDA-Public Use
  Company Number: US-BAYER-2012-044166

PATIENT
  Age: 44 Year
  Sex: Female

DRUGS (7)
  1. HYDROCODONE BITARTRATE AND ACETAMINOPHEN [Concomitant]
     Dosage: 5/500 MG, UNK
     Dates: start: 20090818
  2. ENOXAPARIN [Concomitant]
     Dosage: UNK
  3. SPIRONOLACTONE [Concomitant]
     Dosage: UNK
  4. VITAMINS NOS [Concomitant]
     Dosage: UNK
  5. VICODIN [Concomitant]
     Indication: PAIN
     Dosage: UNK
  6. YAZ [Suspect]
     Dosage: UNK
     Dates: start: 20081114, end: 20090913
  7. ACETAMINOPHEN [Concomitant]
     Dosage: UNK

REACTIONS (4)
  - PULMONARY EMBOLISM [None]
  - INJURY [None]
  - THROMBOPHLEBITIS SUPERFICIAL [None]
  - PAIN [None]
